FAERS Safety Report 6054720-6 (Version None)
Quarter: 2009Q1

REPORT INFORMATION
  Report Type: 
  Country: None (occurrence: None)
  Receive Date: 20090128
  Receipt Date: 20090119
  Transmission Date: 20090719
  Serious: No
  Sender: FDA-Public Use
  Company Number: JP-BRISTOL-MYERS SQUIBB COMPANY-14409486

PATIENT
  Age: 20 Year
  Sex: Male

DRUGS (1)
  1. KENACORT [Suspect]
     Indication: ALOPECIA AREATA
     Route: 030
     Dates: start: 20040801, end: 20050501

REACTIONS (2)
  - LICHEN PLANUS [None]
  - LICHEN STRIATUS [None]
